FAERS Safety Report 7352289-7 (Version None)
Quarter: 2011Q1

REPORT INFORMATION
  Report Type: 
  Country: None (occurrence: None)
  Receive Date: 20110309
  Receipt Date: 20110309
  Transmission Date: 20110831
  Serious: Yes (Other)
  Sender: FDA-Public Use
  Company Number: None

PATIENT
  Age: 69 Year
  Sex: Female
  Weight: 66.2252 kg

DRUGS (1)
  1. DIOVAN [Suspect]
     Indication: HYPERTENSION
     Dosage: 1 TAB DAILY PO
     Route: 048
     Dates: start: 20110303, end: 20110305

REACTIONS (3)
  - FLATULENCE [None]
  - ABDOMINAL PAIN UPPER [None]
  - DIZZINESS [None]
